FAERS Safety Report 16208191 (Version 2)
Quarter: 2019Q2

REPORT INFORMATION
  Report Type: Report from Study
  Country: US (occurrence: US)
  Receive Date: 20190417
  Receipt Date: 20190507
  Transmission Date: 20190711
  Serious: Yes (Hospitalization)
  Sender: FDA-Public Use
  Company Number: US-FERA PHARMACEUTICALS, LLC-2019PRG00182

PATIENT
  Age: 68 Year
  Sex: Female

DRUGS (3)
  1. DECADRON [Suspect]
     Active Substance: DEXAMETHASONE
     Dosage: UNK
  2. ICLUSIG [Suspect]
     Active Substance: PONATINIB
     Indication: ACUTE LYMPHOCYTIC LEUKAEMIA
     Dosage: 30 MG, 1X/DAY
     Route: 048
     Dates: start: 201809
  3. ICLUSIG [Suspect]
     Active Substance: PONATINIB
     Dosage: 15 MG, 1X/DAY
     Route: 048
     Dates: start: 20190128, end: 201904

REACTIONS (4)
  - Blood glucose increased [Unknown]
  - White blood cell count decreased [Unknown]
  - Hospitalisation [Recovered/Resolved]
  - Pyrexia [Unknown]

NARRATIVE: CASE EVENT DATE: 20190219
